FAERS Safety Report 7777237-7 (Version None)
Quarter: 2011Q3

REPORT INFORMATION
  Report Type: 
  Country: None (occurrence: None)
  Receive Date: 20110926
  Receipt Date: 20110913
  Transmission Date: 20111222
  Serious: Yes (Other)
  Sender: FDA-Public Use
  Company Number: PHHY2011BR82590

PATIENT
  Age: 66 Year
  Sex: Male

DRUGS (8)
  1. AMLODIPINE [Concomitant]
     Dosage: 20 MG, DAILY
     Dates: start: 20030101
  2. CHLORTHALIDONE [Suspect]
     Dosage: 25 MG, DAILY
  3. ROSUVASTATIN [Concomitant]
     Dosage: 10 MG, DAILY
     Dates: start: 20030101
  4. EZETIMIBE [Concomitant]
     Dosage: 10 MG, DAILY
     Dates: start: 20030101
  5. DIOVAN [Suspect]
     Dosage: 320 MG, QD
     Dates: start: 20030101
  6. PROPRANOLOL [Concomitant]
     Dosage: 40 MG, BID
     Dates: start: 20030101
  7. ASPIRIN [Concomitant]
     Dosage: 200 MG, DAILY
     Dates: start: 20030101
  8. ALDACTONE [Concomitant]
     Dosage: 25 MG, DAILY
     Dates: start: 20030101

REACTIONS (3)
  - BRAIN NATRIURETIC PEPTIDE INCREASED [None]
  - BLOOD PRESSURE INCREASED [None]
  - VENTRICULAR REMODELING [None]
